FAERS Safety Report 4600047-6 (Version None)
Quarter: 2005Q1

REPORT INFORMATION
  Report Type: 
  Country: None (occurrence: None)
  Receive Date: 20050307
  Receipt Date: 20050224
  Transmission Date: 20050727
  Serious: Yes (Hospitalization)
  Sender: FDA-Public Use
  Company Number: NL-BRISTOL-MYERS SQUIBB COMPANY-12881371

PATIENT
  Age: 89 Year
  Sex: Male

DRUGS (8)
  1. CARBIDOPA AND LEVODOPA [Suspect]
     Indication: PARKINSON'S DISEASE
     Route: 048
     Dates: start: 20050208, end: 20050201
  2. ACENOCOUMAROL [Concomitant]
  3. BICALUTAMIDE [Concomitant]
  4. CAPTOPRIL [Concomitant]
  5. DOXAZOSIN MESYLATE [Concomitant]
  6. FERROUS FUMARATE [Concomitant]
  7. FUROSEMIDE [Concomitant]
  8. SPIRONOLACTONE [Concomitant]

REACTIONS (2)
  - HYPERGLYCAEMIA [None]
  - SIMPLE PARTIAL SEIZURES [None]
